FAERS Safety Report 4750632-6 (Version None)
Quarter: 2005Q3

REPORT INFORMATION
  Report Type: 
  Country: None (occurrence: None)
  Receive Date: 20050818
  Receipt Date: 20050811
  Transmission Date: 20060218
  Serious: Yes (Hospitalization, Other)
  Sender: FDA-Public Use
  Company Number: FRWYE841119JUL05

PATIENT
  Age: 83 Year
  Sex: Female

DRUGS (11)
  1. EFFEXOR XR [Suspect]
     Indication: DEPRESSION
     Dosage: SEE IMAGE
     Route: 048
     Dates: end: 20050602
  2. EFFEXOR XR [Suspect]
     Indication: DEPRESSION
     Dosage: SEE IMAGE
     Route: 048
     Dates: start: 20050603
  3. ATARAX [Concomitant]
  4. STABLON (TIANEPTINE) [Concomitant]
  5. IMOVANE (ZOPICLONE) [Concomitant]
  6. COTAREG (HYDROCHLOROTHIAZIDE/VALSARTAN) [Concomitant]
  7. NEXIUM [Concomitant]
  8. KARDEGIC (ACETYLSALICYLATE LYSINE) [Concomitant]
  9. ACETAMINOPHEN W/ PROPOXYPHENE HCL [Concomitant]
  10. FORLAX (MACROGOL) [Concomitant]
  11. TIAPRIDAL (TIAPRIDE) [Concomitant]

REACTIONS (6)
  - BLOOD GLUCOSE DECREASED [None]
  - DIET REFUSAL [None]
  - FEEDING DISORDER [None]
  - HYPERKALAEMIA [None]
  - HYPONATRAEMIA [None]
  - IMPAIRED SELF-CARE [None]
